FAERS Safety Report 15251368 (Version 12)
Quarter: 2019Q2

REPORT INFORMATION
  Report Type: Report from Study
  Country: RO (occurrence: RO)
  Receive Date: 20180807
  Receipt Date: 20190519
  Transmission Date: 20190711
  Serious: Yes (Life-Threatening, Hospitalization, Disabling, Other)
  Sender: FDA-Public Use
  Company Number: RO-AMGEN-ROUCT2018108579

PATIENT
  Age: 68 Year
  Sex: Female
  Weight: 105 kg

DRUGS (14)
  1. OMEPRAZOL [Concomitant]
     Active Substance: OMEPRAZOLE
     Dosage: 20 MILLIGRAM
     Dates: start: 20180212, end: 20180930
  2. SUMETROLIM [Concomitant]
     Active Substance: SULFAMETHOXAZOLE\TRIMETHOPRIM
     Dosage: 400 MILLIGRAM
     Dates: start: 20180205, end: 20180930
  3. CARFILZOMIB [Suspect]
     Active Substance: CARFILZOMIB
     Dosage: UNK UNK, PER CHEMO REGIM
     Route: 042
     Dates: start: 20180827
  4. CARFILZOMIB [Suspect]
     Active Substance: CARFILZOMIB
     Indication: PLASMA CELL MYELOMA
     Dosage: 123 MG, PER CHEMO REGIM
     Route: 042
     Dates: start: 20180212
  5. DEXAMETHASONE. [Suspect]
     Active Substance: DEXAMETHASONE
     Indication: PLASMA CELL MYELOMA
     Dosage: 20-40 MILLIGRAM
     Route: 048
     Dates: start: 20180212
  6. ACYCLOVIR. [Concomitant]
     Active Substance: ACYCLOVIR
     Dosage: 400 MILLIGRAM
     Dates: start: 20180205, end: 20180930
  7. LORATADINE. [Concomitant]
     Active Substance: LORATADINE
     Dosage: 20 MILLIGRAM
     Route: 048
     Dates: start: 20180212
  8. SINGULAIR [Concomitant]
     Active Substance: MONTELUKAST SODIUM
     Dosage: 10 MILLIGRAM
     Route: 048
     Dates: start: 20180212
  9. LORATADINA [Concomitant]
     Active Substance: LORATADINE
     Dosage: 20 MILLIGRAM
     Route: 048
     Dates: start: 20180212
  10. ALLOPURINOL. [Concomitant]
     Active Substance: ALLOPURINOL
     Dosage: 100 MILLIGRAM
     Dates: start: 20180205, end: 20180930
  11. PARACETAMOL [Concomitant]
     Active Substance: ACETAMINOPHEN
     Dosage: 750 MILLIGRAM
     Route: 048
     Dates: start: 20180212
  12. DARATUMUMAB [Suspect]
     Active Substance: DARATUMUMAB
     Indication: PLASMA CELL MYELOMA
     Dosage: UNK UNK, PER CHEMO REGIM
     Route: 042
     Dates: start: 20180212, end: 20180219
  13. BINOCRIT [Concomitant]
     Active Substance: ERYTHROPOIETIN
     Dosage: 40000 UNK
     Dates: start: 20180326, end: 20180930
  14. MONTELUKAST [Concomitant]
     Active Substance: MONTELUKAST SODIUM
     Dosage: 10 MILLIGRAM
     Route: 048
     Dates: start: 20180212

REACTIONS (4)
  - Atrial fibrillation [Recovered/Resolved]
  - Thrombocytopenia [Recovered/Resolved]
  - Skin infection [Recovered/Resolved]
  - Acute kidney injury [Recovered/Resolved]

NARRATIVE: CASE EVENT DATE: 20180805
